FAERS Safety Report 5923054-X (Version None)
Quarter: 2008Q4

REPORT INFORMATION
  Report Type: 
  Country: None (occurrence: None)
  Receive Date: 20081018
  Receipt Date: 20081007
  Transmission Date: 20090506
  Serious: Yes (Hospitalization)
  Sender: FDA-Public Use
  Company Number: DE-PFIZER INC-2008084745

PATIENT
  Age: 19 Year
  Sex: Male

DRUGS (1)
  1. ZELDOX (CAPSULES) [Suspect]
     Indication: SCHIZOPHRENIA, PARANOID TYPE
     Dosage: DAILY DOSE:160MG
     Route: 048
     Dates: start: 20050901, end: 20051214

REACTIONS (3)
  - DYSKINESIA [None]
  - ON AND OFF PHENOMENON [None]
  - PARKINSONISM [None]
